FAERS Safety Report 10084605 (Version 2)
Quarter: 2014Q2

REPORT INFORMATION
  Report Type: Spontaneous
  Country: TR (occurrence: TR)
  Receive Date: 20140417
  Receipt Date: 20140522
  Transmission Date: 20141212
  Serious: Yes (Hospitalization)
  Sender: FDA-Public Use
  Company Number: TR-BAYER-2014-054188

PATIENT
  Age: 60 Year
  Sex: Male
  Weight: 74.83 kg

DRUGS (1)
  1. REGORAFENIB [Suspect]
     Indication: GASTROINTESTINAL STROMAL TUMOUR
     Dosage: UNK
     Route: 048
     Dates: start: 201401, end: 20140406

REACTIONS (2)
  - Ecchymosis [Recovered/Resolved]
  - Haemorrhagic diathesis [Recovered/Resolved]
